FAERS Safety Report 10728907 (Version 3)
Quarter: 2015Q1

REPORT INFORMATION
  Report Type: Spontaneous
  Country: FR (occurrence: FR)
  Receive Date: 20150122
  Receipt Date: 20150219
  Transmission Date: 20150721
  Serious: Yes (Hospitalization, Other)
  Sender: FDA-Public Use
  Company Number: FR-UCBSA-2015001050

PATIENT
  Age: 16 Year

DRUGS (3)
  1. VIMPAT [Suspect]
     Active Substance: LACOSAMIDE
     Indication: EPILEPSY
     Dosage: 400 MG, ONCE DAILY (QD)
     Dates: start: 201412, end: 20141215
  2. VIMPAT [Suspect]
     Active Substance: LACOSAMIDE
     Dosage: 500 MG, ONCE DAILY (QD)
     Dates: start: 20141216, end: 201412
  3. ZONEGRAN [Concomitant]
     Active Substance: ZONISAMIDE
     Indication: PRODUCT USED FOR UNKNOWN INDICATION
     Dosage: 200 MG

REACTIONS (3)
  - Off label use [Unknown]
  - Overdose [Unknown]
  - Rash maculo-papular [Recovered/Resolved]

NARRATIVE: CASE EVENT DATE: 20141216
